FAERS Safety Report 9647765 (Version 1)
Quarter: 2013Q4

REPORT INFORMATION
  Report Type: Spontaneous
  Country: NO (occurrence: NO)
  Receive Date: 20131028
  Receipt Date: 20131028
  Transmission Date: 20140711
  Serious: No
  Sender: FDA-Public Use
  Company Number: NO-JNJFOC-20131012382

PATIENT
  Age: 65 Year
  Sex: Female

DRUGS (1)
  1. DUROGESIC [Suspect]
     Indication: PROCEDURAL PAIN
     Route: 062
     Dates: start: 2012

REACTIONS (1)
  - Drug administration error [Recovered/Resolved]
